FAERS Safety Report 6661239-8 (Version None)
Quarter: 2010Q1

REPORT INFORMATION
  Report Type: 
  Country: None (occurrence: None)
  Receive Date: 20100326
  Receipt Date: 20060110
  Transmission Date: 20100710
  Serious: Yes (Other)
  Sender: FDA-Public Use
  Company Number: 2009-2632

PATIENT
  Age: 55 Year
  Sex: Male

DRUGS (3)
  1. APO-GO AMPOULES (APO-GO)  (APOMORPHINE HYDROCHLORIDE) (APOMORPHINE HYD [Suspect]
     Indication: PARKINSON'S DISEASE
     Dosage: (6.8 MG, 1 IN 1 HR), SUBCUTANEOUS
     Route: 058
     Dates: start: 20051103
  2. STALEVO 100 [Suspect]
     Indication: PARKINSON'S DISEASE
     Dosage: 100 MG, CARBIDOPA 25 MG AND ENTACAPONE 200 MG (1 DOSAGE FORMS, 1 IN 1 D), ORAL
     Route: 048
     Dates: start: 20051103
  3. SIFROL (PRAMIPEXOLE DIHYDROCHLORIDE) (PRAMIPEXOLE DIHYDROCHLORIDE) [Suspect]
     Indication: PARKINSON'S DISEASE
     Dosage: 0.875 MG (0.875 MG, 1 IN 1 D), ORAL
     Route: 048
     Dates: start: 20051103

REACTIONS (3)
  - AGGRESSION [None]
  - AGITATION [None]
  - MENTAL DISORDER [None]
